FAERS Safety Report 5948018-1 (Version None)
Quarter: 2008Q4

REPORT INFORMATION
  Report Type: 
  Country: None (occurrence: None)
  Receive Date: 20081111
  Receipt Date: 20081031
  Transmission Date: 20090506
  Serious: Yes (Hospitalization)
  Sender: FDA-Public Use
  Company Number: ES-JNJFOC-20081005122

PATIENT
  Age: 37 Year
  Sex: Female

DRUGS (3)
  1. REMICADE [Suspect]
     Route: 042
  2. REMICADE [Suspect]
     Indication: ANKYLOSING SPONDYLITIS
     Route: 042
  3. SUAVURET [Interacting]
     Indication: ORAL CONTRACEPTION
     Route: 048

REACTIONS (2)
  - CEREBRAL VENOUS THROMBOSIS [None]
  - DRUG INTERACTION [None]
